FAERS Safety Report 7884704-4 (Version None)
Quarter: 2011Q4

REPORT INFORMATION
  Report Type: 
  Country: None (occurrence: None)
  Receive Date: 20111102
  Receipt Date: 20111025
  Transmission Date: 20120403
  Serious: Yes (Hospitalization)
  Sender: FDA-Public Use
  Company Number: US-ABBOTT-11P-163-0868335-00

PATIENT
  Sex: Female
  Weight: 97.61 kg

DRUGS (6)
  1. VITAMIN D [Concomitant]
     Indication: VITAMIN SUPPLEMENTATION
  2. METFORMIN HCL [Concomitant]
     Indication: DIABETES MELLITUS
     Dosage: TYPE II
  3. HUMIRA [Suspect]
     Indication: RHEUMATOID ARTHRITIS
     Dates: start: 20040101
  4. METHOTREXATE [Concomitant]
     Indication: RHEUMATOID ARTHRITIS
  5. CALCIUM [Concomitant]
     Indication: MINERAL SUPPLEMENTATION
  6. EXCEDRIN BACK AND BODY [Concomitant]
     Indication: ARTHRALGIA

REACTIONS (10)
  - OSTEOPOROSIS [None]
  - INCORRECT DOSE ADMINISTERED [None]
  - FEELING ABNORMAL [None]
  - BACK PAIN [None]
  - INJECTION SITE PAIN [None]
  - KNEE ARTHROPLASTY [None]
  - BACK DISORDER [None]
  - SPINAL COMPRESSION FRACTURE [None]
  - PNEUMONIA [None]
  - DISABILITY [None]
